FAERS Safety Report 8542124-3 (Version None)
Quarter: 2012Q3

REPORT INFORMATION
  Report Type: 
  Country: None (occurrence: None)
  Receive Date: 20120726
  Receipt Date: 20111014
  Transmission Date: 20120928
  Serious: No
  Sender: FDA-Public Use
  Company Number: US-ASTRAZENECA-2011SE61958

PATIENT
  Age: 35 Year
  Sex: Female
  Weight: 54.9 kg

DRUGS (5)
  1. TRAZODONE HYDROCHLORIDE [Concomitant]
  2. SEROQUEL [Suspect]
     Indication: ANXIETY
     Route: 048
     Dates: start: 20110616
  3. FAMOTIDINE [Concomitant]
  4. SEROQUEL [Suspect]
     Indication: BIPOLAR DISORDER
     Route: 048
     Dates: start: 20110616
  5. CORTICORT [Concomitant]

REACTIONS (3)
  - INSOMNIA [None]
  - PANIC ATTACK [None]
  - NIGHTMARE [None]
